FAERS Safety Report 20124403 (Version 1)
Quarter: 2021Q4

REPORT INFORMATION
  Report Type: Spontaneous
  Country: US (occurrence: US)
  Receive Date: 20211129
  Receipt Date: 20211129
  Transmission Date: 20220303
  Serious: Yes (Other)
  Sender: FDA-Public Use
  Company Number: US-TEVA-2021-US-1980251

PATIENT
  Age: 85 Year
  Sex: Female

DRUGS (4)
  1. WARFARIN SODIUM [Suspect]
     Active Substance: WARFARIN SODIUM
     Indication: Pulmonary embolism
     Route: 065
     Dates: start: 2020
  2. WARFARIN SODIUM [Suspect]
     Active Substance: WARFARIN SODIUM
     Indication: Respiratory failure
  3. WARFARIN SODIUM [Suspect]
     Active Substance: WARFARIN SODIUM
     Indication: Cardiac arrest
  4. WARFARIN SODIUM [Suspect]
     Active Substance: WARFARIN SODIUM
     Indication: Cerebrovascular accident

REACTIONS (16)
  - Haemorrhage [Unknown]
  - Loss of consciousness [Unknown]
  - Gastric ulcer [Unknown]
  - Condition aggravated [Unknown]
  - Arthralgia [Unknown]
  - Rash [Unknown]
  - Swelling [Unknown]
  - Dizziness [Unknown]
  - Abdominal pain [Unknown]
  - Dyspepsia [Unknown]
  - Eating disorder [Unknown]
  - Gastrointestinal pain [Unknown]
  - Pain [Unknown]
  - Hyperhidrosis [Unknown]
  - Epistaxis [Unknown]
  - Product substitution issue [Unknown]

NARRATIVE: CASE EVENT DATE: 20210101
